FAERS Safety Report 17043717 (Version 1)
Quarter: 2019Q4

REPORT INFORMATION
  Report Type: Spontaneous
  Country: KR (occurrence: KR)
  Receive Date: 20191118
  Receipt Date: 20191118
  Transmission Date: 20200122
  Serious: Yes (Hospitalization, Other)
  Sender: FDA-Public Use
  Company Number: KR-BAYER-2019-202654

PATIENT
  Sex: Female

DRUGS (3)
  1. YAZ [Suspect]
     Active Substance: DROSPIRENONE\ETHINYL ESTRADIOL
     Indication: OVARIAN HAEMORRHAGE
     Dosage: UNK
     Route: 048
     Dates: start: 201910
  2. ASPIRIN. [Interacting]
     Active Substance: ASPIRIN
     Indication: MOYAMOYA DISEASE
     Dosage: UNK
     Route: 048
  3. CLOART [Interacting]
     Active Substance: CLOPIDOGREL BISULFATE
     Dosage: UNK
     Dates: start: 201805

REACTIONS (9)
  - Adnexa uteri pain [None]
  - Product use in unapproved indication [None]
  - Labelled drug-drug interaction medication error [None]
  - Off label use [None]
  - Peritoneal haemorrhage [Recovered/Resolved]
  - Genital haemorrhage [Recovered/Resolved]
  - Abdominal pain upper [Recovered/Resolved]
  - Hemiparesis [None]
  - Ovarian haemorrhage [Recovered/Resolved]

NARRATIVE: CASE EVENT DATE: 2012
